FAERS Safety Report 13431901 (Version 1)
Quarter: 2017Q2

REPORT INFORMATION
  Report Type: Spontaneous
  Country: FR (occurrence: FR)
  Receive Date: 20170412
  Receipt Date: 20170412
  Transmission Date: 20170830
  Serious: Yes (Hospitalization, Other)
  Sender: FDA-Public Use
  Company Number: FR-PFIZER INC-2017150354

PATIENT
  Age: 37 Year
  Sex: Female

DRUGS (22)
  1. ENOXAPARIN SODIUM. [Concomitant]
     Active Substance: ENOXAPARIN SODIUM
     Dosage: UNK
     Dates: start: 20170313
  2. KETOPROFEN. [Concomitant]
     Active Substance: KETOPROFEN
     Dosage: UNK
     Route: 042
     Dates: start: 20170311
  3. CORTANCYL [Concomitant]
     Active Substance: PREDNISONE
  4. CAFFEINE CITRATE. [Concomitant]
     Active Substance: CAFFEINE CITRATE
     Dosage: UNK
     Dates: start: 20170313, end: 20170317
  5. FOLIC ACID. [Concomitant]
     Active Substance: FOLIC ACID
     Dosage: UNK
     Dates: start: 20170313, end: 20170318
  6. METOJECT [Suspect]
     Active Substance: METHOTREXATE SODIUM
     Indication: CENTRAL NERVOUS SYSTEM LUPUS
     Dosage: 15 MG, WEEKLY
     Dates: start: 20170313
  7. PARACETAMOL [Suspect]
     Active Substance: ACETAMINOPHEN
     Indication: PAIN
     Dosage: UNK
     Dates: start: 20170311, end: 20170315
  8. MORPHINE [Concomitant]
     Active Substance: MORPHINE
     Dosage: UNK
     Dates: start: 20170311
  9. NEURONTIN [Suspect]
     Active Substance: GABAPENTIN
     Indication: PAIN
     Dosage: UNK
     Dates: start: 20170313, end: 20170316
  10. CAFFEINE/PARACETAMOL/PHENAZONE [Concomitant]
     Dosage: UNK
     Dates: start: 20170313
  11. PREDNISONE. [Concomitant]
     Active Substance: PREDNISONE
     Dosage: UNK
     Dates: start: 20170314, end: 20170319
  12. BELIMUMAB [Concomitant]
     Active Substance: BELIMUMAB
  13. UVEDOSE [Concomitant]
     Active Substance: CHOLECALCIFEROL
  14. VALACICLOVIR [Concomitant]
     Active Substance: VALACYCLOVIR HYDROCHLORIDE
     Dosage: UNK
     Dates: start: 20170313, end: 20170319
  15. NEFOPAM [Concomitant]
     Active Substance: NEFOPAM
     Dosage: UNK
     Dates: start: 20170315, end: 20170319
  16. MACROGOL 400 [Concomitant]
     Dosage: UNK
     Dates: start: 20170312, end: 20170315
  17. ESOMEPRAZOLE [Concomitant]
     Active Substance: ESOMEPRAZOLE
     Dosage: UNK
     Dates: start: 20170313, end: 20170319
  18. INEXIUM /01479302/ [Concomitant]
     Active Substance: ESOMEPRAZOLE MAGNESIUM
  19. TRAMADOL. [Concomitant]
     Active Substance: TRAMADOL
     Dosage: UNK
     Dates: start: 20170311
  20. TRAMADOL. [Concomitant]
     Active Substance: TRAMADOL
     Dosage: UNK
     Dates: start: 20170318, end: 20170319
  21. THIOCOLCHICOSIDE [Concomitant]
     Active Substance: THIOCOLCHICOSIDE
     Dosage: UNK
     Dates: start: 20170314, end: 20170315
  22. THIOCOLCHICOSIDE [Concomitant]
     Active Substance: THIOCOLCHICOSIDE
     Dosage: UNK
     Dates: start: 20170318, end: 20170319

REACTIONS (2)
  - Hepatocellular injury [Recovering/Resolving]
  - Product use in unapproved indication [Unknown]

NARRATIVE: CASE EVENT DATE: 20170313
